FAERS Safety Report 5167049-5 (Version None)
Quarter: 2006Q4

REPORT INFORMATION
  Report Type: 
  Country: None (occurrence: None)
  Receive Date: 20061207
  Receipt Date: 20061031
  Transmission Date: 20070319
  Serious: Yes (Life-Threatening)
  Sender: FDA-Public Use
  Company Number: JP-BRISTOL-MYERS SQUIBB COMPANY-13562459

PATIENT
  Age: 58 Year
  Sex: Male

DRUGS (5)
  1. TAXOL [Suspect]
     Indication: LUNG NEOPLASM MALIGNANT
     Route: 042
     Dates: start: 20061018, end: 20061018
  2. DIPHENHYDRAMINE HCL [Concomitant]
     Route: 048
     Dates: start: 20061018, end: 20061018
  3. FAMOTIDINE [Concomitant]
     Route: 042
     Dates: start: 20061018, end: 20061018
  4. DEXAMETHASONE SODIUM PHOSPHATE [Concomitant]
     Route: 042
     Dates: start: 20061018, end: 20061018
  5. RAMOSETRON HCL [Concomitant]
     Route: 042
     Dates: start: 20061018, end: 20061018

REACTIONS (3)
  - BACK PAIN [None]
  - CONVULSION [None]
  - RESPIRATORY FAILURE [None]
